FAERS Safety Report 5712340-4 (Version None)
Quarter: 2008Q2

REPORT INFORMATION
  Report Type: 
  Country: None (occurrence: None)
  Receive Date: 20080421
  Receipt Date: 20080421
  Transmission Date: 20081010
  Serious: Yes (Hospitalization)
  Sender: FDA-Public Use
  Company Number: None

PATIENT
  Age: 55 Year
  Sex: Female
  Weight: 68.9467 kg

DRUGS (2)
  1. LEVAQUIN [Suspect]
     Indication: SINUSITIS
     Dosage: LEVAQUIN
  2. AVELOX [Suspect]
     Indication: SINUSITIS
     Dosage: AVELOX

REACTIONS (15)
  - ANXIETY [None]
  - ARTHRALGIA [None]
  - BACK PAIN [None]
  - DIZZINESS [None]
  - EYE DISORDER [None]
  - FEELING JITTERY [None]
  - HALO VISION [None]
  - HEADACHE [None]
  - INSOMNIA [None]
  - MUSCULOSKELETAL PAIN [None]
  - MYALGIA [None]
  - PAIN IN EXTREMITY [None]
  - PHOTOPSIA [None]
  - SINUSITIS [None]
  - THINKING ABNORMAL [None]
